FAERS Safety Report 6330585-X (Version None)
Quarter: 2009Q3

REPORT INFORMATION
  Report Type: 
  Country: None (occurrence: None)
  Receive Date: 20090827
  Receipt Date: 20090824
  Transmission Date: 20100115
  Serious: Yes (Other)
  Sender: FDA-Public Use
  Company Number: US-BRISTOL-MYERS SQUIBB COMPANY-14752836

PATIENT
  Sex: Female

DRUGS (1)
  1. ORENCIA [Suspect]

REACTIONS (5)
  - HAEMOPTYSIS [None]
  - JOINT SWELLING [None]
  - RESPIRATORY TRACT CONGESTION [None]
  - SWELLING FACE [None]
  - WEIGHT INCREASED [None]
